FAERS Safety Report 8482683-2 (Version None)
Quarter: 2012Q3

REPORT INFORMATION
  Report Type: 
  Country: None (occurrence: None)
  Receive Date: 20120702
  Receipt Date: 20120626
  Transmission Date: 20120928
  Serious: Yes (Hospitalization, Disabling, Other)
  Sender: FDA-Public Use
  Company Number: US-MERCK-1203USA03372

PATIENT
  Age: 69 Year
  Sex: Female
  Weight: 75 kg

DRUGS (14)
  1. ALENDRONATE SODIUM [Suspect]
     Route: 048
     Dates: start: 20100501, end: 20110201
  2. ALENDRONATE SODIUM [Suspect]
     Route: 048
     Dates: start: 20090701, end: 20100201
  3. FOSAMAX [Suspect]
     Route: 048
     Dates: start: 20010601, end: 20070701
  4. FOSAMAX [Suspect]
     Indication: OSTEOPOROSIS
     Route: 048
     Dates: start: 19951201, end: 20010401
  5. BONIVA [Suspect]
     Route: 048
     Dates: start: 20070801, end: 20071001
  6. ALENDRONATE SODIUM [Suspect]
     Indication: OSTEOPOROSIS
     Route: 048
     Dates: start: 20090601
  7. BONIVA [Suspect]
     Indication: OSTEOPOROSIS
     Route: 048
     Dates: start: 20070801, end: 20071001
  8. FOSAMAX [Suspect]
     Route: 048
     Dates: start: 19951201, end: 20010401
  9. FOSAMAX [Suspect]
     Route: 048
     Dates: start: 20070701
  10. FOSAMAX [Suspect]
     Route: 048
     Dates: start: 20070701
  11. ALENDRONATE SODIUM [Suspect]
     Route: 048
     Dates: start: 20100501, end: 20110201
  12. FOSAMAX [Suspect]
     Route: 048
     Dates: start: 20010601, end: 20070701
  13. ALENDRONATE SODIUM [Suspect]
     Route: 048
     Dates: start: 20090701, end: 20100201
  14. ALENDRONATE SODIUM [Suspect]
     Route: 048
     Dates: start: 20090601

REACTIONS (61)
  - ANAEMIA POSTOPERATIVE [None]
  - FALL [None]
  - PANCREATITIS ACUTE [None]
  - LOW TURNOVER OSTEOPATHY [None]
  - ACUTE SINUSITIS [None]
  - COLON ADENOMA [None]
  - LUNG NEOPLASM [None]
  - LIMB INJURY [None]
  - CHOLELITHIASIS [None]
  - DECREASED APPETITE [None]
  - ANKLE FRACTURE [None]
  - PARAESTHESIA [None]
  - GASTRITIS [None]
  - CERUMEN IMPACTION [None]
  - FRACTURE DELAYED UNION [None]
  - NAUSEA [None]
  - BACK PAIN [None]
  - BURSITIS [None]
  - HYPOTHYROIDISM [None]
  - COLONIC POLYP [None]
  - FEMUR FRACTURE [None]
  - HEPATITIS [None]
  - HYPONATRAEMIA [None]
  - OEDEMA PERIPHERAL [None]
  - LARYNGITIS [None]
  - KYPHOSIS [None]
  - PERIPHERAL VASCULAR DISORDER [None]
  - PYREXIA [None]
  - DRY MOUTH [None]
  - TREATMENT FAILURE [None]
  - INTERVERTEBRAL DISC DEGENERATION [None]
  - RIB FRACTURE [None]
  - PNEUMONIA [None]
  - GASTROOESOPHAGEAL REFLUX DISEASE [None]
  - GAIT DISTURBANCE [None]
  - FIBROCYSTIC BREAST DISEASE [None]
  - ABDOMINAL PAIN UPPER [None]
  - CAROTID BRUIT [None]
  - HYPERTENSION [None]
  - ANAEMIA OF CHRONIC DISEASE [None]
  - DEVICE FAILURE [None]
  - FIBULA FRACTURE [None]
  - HEARING IMPAIRED [None]
  - HYPOKALAEMIA [None]
  - CAROTID ARTERIOSCLEROSIS [None]
  - PAIN IN EXTREMITY [None]
  - SJOGREN'S SYNDROME [None]
  - UTERINE DISORDER [None]
  - URINARY RETENTION [None]
  - DEAFNESS [None]
  - BALANCE DISORDER [None]
  - STOMACH MASS [None]
  - COUGH [None]
  - MUSCULOSKELETAL PAIN [None]
  - MEDICAL DEVICE COMPLICATION [None]
  - WHITE BLOOD CELL COUNT INCREASED [None]
  - DIVERTICULUM [None]
  - ONYCHOMYCOSIS [None]
  - PULMONARY FIBROSIS [None]
  - VITRECTOMY [None]
  - SPINAL COMPRESSION FRACTURE [None]
